FAERS Safety Report 10779995 (Version 3)
Quarter: 2015Q1

REPORT INFORMATION
  Report Type: Spontaneous
  Country: US (occurrence: US)
  Receive Date: 20150210
  Receipt Date: 20150225
  Transmission Date: 20150721
  Serious: Yes (Congenital Anomaly, Other)
  Sender: FDA-Public Use
  Company Number: US-APOTEX-2015AP006369

PATIENT
  Age: 5 Year
  Sex: Male
  Weight: 3 kg

DRUGS (1)
  1. PAXIL [Suspect]
     Active Substance: PAROXETINE HYDROCHLORIDE
     Indication: DEPRESSION
     Dosage: 20 MG, DAILY
     Route: 064
     Dates: end: 2002

REACTIONS (9)
  - Congenital aortic anomaly [Unknown]
  - Congenital cardiovascular anomaly [Unknown]
  - Bundle branch block right [Unknown]
  - Pulmonary artery dilatation [Unknown]
  - Atrial septal defect [Unknown]
  - Anomalous pulmonary venous connection [Unknown]
  - Congenital anomaly [Unknown]
  - Cardiac hypertrophy [Unknown]
  - Foetal exposure during pregnancy [Unknown]

NARRATIVE: CASE EVENT DATE: 20080123
